FAERS Safety Report 5360639-6 (Version None)
Quarter: 2007Q2

REPORT INFORMATION
  Report Type: 
  Country: None (occurrence: None)
  Receive Date: 20070530
  Receipt Date: 20070327
  Transmission Date: 20071010
  Serious: No
  Sender: FDA-Public Use
  Company Number: 2007PV032511

PATIENT
  Age: 49 Year
  Sex: Female
  Weight: 91.173 kg

DRUGS (5)
  1. BYETTA [Suspect]
     Indication: INSULIN RESISTANCE
     Dosage: 10 MCG; BID; SC, 5 MCG; BID; SC
     Route: 058
     Dates: start: 20070208, end: 20070222
  2. BYETTA [Suspect]
     Indication: WEIGHT DECREASED
     Dosage: 10 MCG; BID; SC, 5 MCG; BID; SC
     Route: 058
     Dates: start: 20070208, end: 20070222
  3. BYETTA [Suspect]
     Indication: INSULIN RESISTANCE
     Dosage: 10 MCG; BID; SC, 5 MCG; BID; SC
     Route: 058
     Dates: start: 20070201
  4. BYETTA [Suspect]
     Indication: WEIGHT DECREASED
     Dosage: 10 MCG; BID; SC, 5 MCG; BID; SC
     Route: 058
     Dates: start: 20070201
  5. BYETTA [Suspect]

REACTIONS (8)
  - ABDOMINAL DISTENSION [None]
  - FEELING JITTERY [None]
  - HIRSUTISM [None]
  - HYPOTRICHOSIS [None]
  - INCORRECT DOSE ADMINISTERED [None]
  - MENISCUS LESION [None]
  - NAUSEA [None]
  - WEIGHT DECREASED [None]
